FAERS Safety Report 10034757 (Version 1)
Quarter: 2014Q1

REPORT INFORMATION
  Report Type: Spontaneous
  Country: US (occurrence: US)
  Receive Date: 20140325
  Receipt Date: 20140325
  Transmission Date: 20141002
  Serious: Yes (Hospitalization, Other)
  Sender: FDA-Public Use
  Company Number: US-AMGEN-USASP2014019344

PATIENT
  Age: 78 Year
  Sex: Male

DRUGS (1)
  1. SENSIPAR [Suspect]
     Indication: HYPERPARATHYROIDISM SECONDARY
     Dosage: 90 MG, QD
     Route: 065
     Dates: start: 20101206

REACTIONS (5)
  - Mental status changes [Unknown]
  - Pyrexia [Unknown]
  - Dysphagia [Unknown]
  - Hypercalcaemia [Not Recovered/Not Resolved]
  - Infection [Not Recovered/Not Resolved]
